FAERS Safety Report 9106817 (Version 3)
Quarter: 2013Q2

REPORT INFORMATION
  Report Type: Spontaneous
  Country: GB (occurrence: GB)
  Receive Date: 20130222
  Receipt Date: 20130418
  Transmission Date: 20140414
  Serious: Yes (Other)
  Sender: FDA-Public Use
  Company Number: GB-WATSON-2013-02913

PATIENT
  Age: 56 Year
  Sex: Female

DRUGS (3)
  1. TRANEXAMIC ACID (WATSON LABORATORIES) [Suspect]
     Indication: MENORRHAGIA
     Dosage: 15 MG, DAILY
     Route: 065
  2. NORETHISTERONE [Suspect]
     Indication: MENORRHAGIA
     Dosage: 15 MG, UNK
     Route: 065
     Dates: start: 20121125
  3. RAMIPRIL [Concomitant]
     Dosage: 10 MG, DAILY
     Route: 065

REACTIONS (7)
  - Type 2 diabetes mellitus [Unknown]
  - Urine ketone body present [Unknown]
  - Drug ineffective [Unknown]
  - Metabolic syndrome [Unknown]
  - Visual impairment [Unknown]
  - Muscle spasms [Unknown]
  - Weight decreased [Unknown]
